FAERS Safety Report 8054855-2 (Version None)
Quarter: 2012Q1

REPORT INFORMATION
  Report Type: 
  Country: None (occurrence: None)
  Receive Date: 20120119
  Receipt Date: 20120116
  Transmission Date: 20120608
  Serious: Yes (Life-Threatening, Hospitalization)
  Sender: FDA-Public Use
  Company Number: GB-BAYER-2012-004851

PATIENT
  Age: 25 Year
  Sex: Female

DRUGS (1)
  1. NEXAVAR [Suspect]
     Dosage: UNK
     Dates: start: 20120101, end: 20120112

REACTIONS (9)
  - DEPRESSED LEVEL OF CONSCIOUSNESS [None]
  - DYSKINESIA [None]
  - LEUKOENCEPHALOPATHY [None]
  - UNRESPONSIVE TO STIMULI [None]
  - LOSS OF CONSCIOUSNESS [None]
  - FEELING ABNORMAL [None]
  - MUSCLE TWITCHING [None]
  - HYPOTONIA [None]
  - DISSOCIATION [None]
